FAERS Safety Report 23603688 (Version 1)
Quarter: 2024Q1

REPORT INFORMATION
  Report Type: Spontaneous
  Country: NL (occurrence: NL)
  Receive Date: 20240307
  Receipt Date: 20240307
  Transmission Date: 20240409
  Serious: Yes (Hospitalization, Other)
  Sender: FDA-Public Use
  Company Number: NL-AUROBINDO-AUR-APL-2014-01824

PATIENT
  Age: 15 Year
  Sex: Female

DRUGS (9)
  1. RISPERIDONE [Suspect]
     Active Substance: RISPERIDONE
     Indication: Agitation
     Dosage: 2.5 MG,ONCE A DAY,
     Route: 048
  2. HALOPERIDOL [Suspect]
     Active Substance: HALOPERIDOL
     Indication: Agitation
     Dosage: .25 MG,3 TIMES A DAY,
     Route: 042
  3. PROMETHAZINE [Suspect]
     Active Substance: PROMETHAZINE HYDROCHLORIDE
     Indication: Insomnia
     Dosage: 25 MG INCIDENTALLY
     Route: 048
  4. METHADONE [Concomitant]
     Active Substance: METHADONE HYDROCHLORIDE
     Indication: Insomnia
     Dosage: 2.05 MILLIGRAM, 3 TIMES A DAY
     Route: 048
  5. LEVOMEPROMAZINE [Concomitant]
     Active Substance: LEVOMEPROMAZINE
     Indication: Product used for unknown indication
     Dosage: 5 MILLIGRAM, EVERY HOUR
     Route: 042
  6. OXAZEPAM [Concomitant]
     Active Substance: OXAZEPAM
     Indication: Insomnia
     Dosage: 10 MG INCIDENTALLY
     Route: 048
  7. LORAZEPAM [Concomitant]
     Active Substance: LORAZEPAM
     Indication: Insomnia
     Dosage: 2 MILLIGRAM, ONCE A DAY
     Route: 048
  8. MELATONIN [Concomitant]
     Active Substance: MELATONIN
     Indication: Insomnia
     Dosage: 3 MILLIGRAM, ONCE A DAY
     Route: 048
  9. TRAZODONE [Concomitant]
     Active Substance: TRAZODONE HYDROCHLORIDE
     Indication: Insomnia
     Dosage: 100 MILLIGRAM, ONCE A DAY
     Route: 048

REACTIONS (7)
  - Neuroleptic malignant syndrome [Recovering/Resolving]
  - Dystonia [Unknown]
  - Pyrexia [Unknown]
  - Blood creatine phosphokinase increased [Recovering/Resolving]
  - Tachycardia [Recovering/Resolving]
  - Drug ineffective [Unknown]
  - Oromandibular dystonia [Recovering/Resolving]
